FAERS Safety Report 6305465-6 (Version None)
Quarter: 2009Q3

REPORT INFORMATION
  Report Type: 
  Country: None (occurrence: None)
  Receive Date: 20090811
  Receipt Date: 20090731
  Transmission Date: 20100115
  Serious: Yes (Hospitalization)
  Sender: FDA-Public Use
  Company Number: PHHO2009US09766

PATIENT
  Sex: Male
  Weight: 75.6 kg

DRUGS (2)
  1. RAD 666 RAD+TAB [Suspect]
     Indication: MULTIPLE MYELOMA
     Dosage: 5 MG, QD
     Route: 048
  2. LENALIDOMIDE [Concomitant]
     Indication: MULTIPLE MYELOMA
     Dosage: UNK

REACTIONS (3)
  - COUGH [None]
  - HYPOTENSION [None]
  - PYREXIA [None]
